FAERS Safety Report 24069486 (Version 2)
Quarter: 2024Q3

REPORT INFORMATION
  Report Type: Report from Study
  Country: MX (occurrence: MX)
  Receive Date: 20240710
  Receipt Date: 20240710
  Transmission Date: 20241017
  Serious: No
  Sender: ROCHE
  Company Number: MX-ROCHE-3434637

PATIENT
  Age: 49 Year
  Sex: Female
  Weight: 67.5 kg

DRUGS (6)
  1. PHESGO [Suspect]
     Active Substance: HYALURONIDASE-ZZXF\PERTUZUMAB\TRASTUZUMAB
     Indication: Breast cancer
     Dosage: PERTUZUMAB 1200 MG / TRASTUZUMAB 600 MG EVERY 21 DAYS
     Route: 058
     Dates: start: 20230921
  2. DEXAMETHASONE [Concomitant]
     Active Substance: DEXAMETHASONE
  3. CARBOPLATIN [Concomitant]
     Active Substance: CARBOPLATIN
  4. DIPHENHYDRAMINE [Concomitant]
     Active Substance: DIPHENHYDRAMINE
  5. DOCETAXEL [Concomitant]
     Active Substance: DOCETAXEL\DOCETAXEL ANHYDROUS
  6. ONDANSETRON [Concomitant]
     Active Substance: ONDANSETRON

REACTIONS (7)
  - Abdominal discomfort [Unknown]
  - Nausea [Unknown]
  - Fatigue [Unknown]
  - Influenza like illness [Unknown]
  - Dysgeusia [Unknown]
  - Dizziness [Unknown]
  - Somnolence [Unknown]

NARRATIVE: CASE EVENT DATE: 20230921
